FAERS Safety Report 7120782-8 (Version None)
Quarter: 2010Q4

REPORT INFORMATION
  Report Type: 
  Country: None (occurrence: None)
  Receive Date: 20101117
  Receipt Date: 20101117
  Transmission Date: 20110411
  Serious: No
  Sender: FDA-Public Use
  Company Number: None

PATIENT
  Sex: Female

DRUGS (7)
  1. SPIRIVA [Suspect]
     Dosage: INHALE CONTENTS OF ONE CAPSULE DAILY VIA HANDIHALER
     Route: 055
     Dates: start: 20081105
  2. ADVAIR [Concomitant]
  3. LIPITOR [Concomitant]
  4. ALLOPURINOL [Concomitant]
  5. AMIODARONE [Concomitant]
  6. ISOSORBIDE MONO ER [Concomitant]
  7. PLAVIX [Concomitant]

REACTIONS (1)
  - PRODUCT QUALITY ISSUE [None]
